FAERS Safety Report 16108650 (Version 1)
Quarter: 2019Q1

REPORT INFORMATION
  Report Type: Spontaneous
  Country: DE (occurrence: DE)
  Receive Date: 20190323
  Receipt Date: 20190323
  Transmission Date: 20190418
  Serious: Yes (Hospitalization, Other)
  Sender: FDA-Public Use
  Company Number: DE-DRREDDYS-GER/GER/19/0108828

PATIENT
  Age: 62 Year
  Sex: Female

DRUGS (3)
  1. RAMIPRIL. [Suspect]
     Active Substance: RAMIPRIL
     Dates: start: 2006, end: 2008
  2. RAMIPRIL. [Suspect]
     Active Substance: RAMIPRIL
     Indication: HYPERTENSION
     Dates: start: 2008
  3. QUILONUM [Suspect]
     Active Substance: LITHIUM
     Indication: SCHIZOAFFECTIVE DISORDER
     Dates: start: 1992

REACTIONS (6)
  - Toxicity to various agents [Unknown]
  - Psychomotor retardation [Recovered/Resolved]
  - Aphasia [Unknown]
  - Dysmetria [Unknown]
  - Hyperreflexia [Unknown]
  - Somnolence [Unknown]
